FAERS Safety Report 11863729 (Version 2)
Quarter: 2015Q4

REPORT INFORMATION
  Report Type: Report from Study
  Country: US (occurrence: US)
  Receive Date: 20151223
  Receipt Date: 20151228
  Transmission Date: 20160305
  Serious: Yes (Hospitalization)
  Sender: FDA-Public Use
  Company Number: PHHO2015US020858

PATIENT
  Age: 57 Year
  Sex: Female
  Weight: 76.9 kg

DRUGS (7)
  1. ATORVASTATIN [Concomitant]
     Active Substance: ATORVASTATIN
     Indication: PRODUCT USED FOR UNKNOWN INDICATION
     Route: 065
  2. SYNTHROID [Concomitant]
     Active Substance: LEVOTHYROXINE SODIUM
     Indication: PRODUCT USED FOR UNKNOWN INDICATION
     Dosage: 150 MCG, QD
     Route: 065
  3. AFINITOR [Suspect]
     Active Substance: EVEROLIMUS
     Indication: ENDOMETRIAL CANCER
     Dosage: 10 MG, QD
     Route: 048
     Dates: start: 20150803
  4. VITAMIN B [Concomitant]
     Active Substance: VITAMIN B
     Indication: PRODUCT USED FOR UNKNOWN INDICATION
     Route: 065
  5. GENERIC METFORMIN [Suspect]
     Active Substance: METFORMIN HYDROCHLORIDE
     Indication: ENDOMETRIAL CANCER
     Dosage: 500 MG, BID
     Route: 048
     Dates: start: 20150723
  6. ZOFRAN [Concomitant]
     Active Substance: ONDANSETRON HYDROCHLORIDE
     Indication: NASOPHARYNGITIS
     Route: 065
  7. CGS 20267 [Suspect]
     Active Substance: LETROZOLE
     Indication: ENDOMETRIAL CANCER
     Dosage: 2.5 MG, QD
     Route: 048
     Dates: start: 20150803

REACTIONS (1)
  - Cholecystitis acute [Unknown]

NARRATIVE: CASE EVENT DATE: 20151209
